FAERS Safety Report 10369601 (Version 2)
Quarter: 2015Q4

REPORT INFORMATION
  Report Type: Spontaneous
  Country: US (occurrence: US)
  Receive Date: 20140807
  Receipt Date: 20151013
  Transmission Date: 20160304
  Serious: No
  Sender: FDA-Public Use
  Company Number: US-AMGEN-USASP2014028304

PATIENT
  Age: 60 Year
  Sex: Female

DRUGS (1)
  1. NEUPOGEN [Suspect]
     Active Substance: FILGRASTIM
     Indication: WHITE BLOOD CELL COUNT ABNORMAL
     Dosage: 480 MCG, DAILY FOR FIVE DAYS
     Route: 058

REACTIONS (5)
  - Bone pain [Unknown]
  - Back pain [Unknown]
  - Breast induration [Unknown]
  - Breast discomfort [Unknown]
  - Breast swelling [Unknown]
